FAERS Safety Report 5286551-9 (Version None)
Quarter: 2007Q2

REPORT INFORMATION
  Report Type: 
  Country: None (occurrence: None)
  Receive Date: 20070404
  Receipt Date: 20070328
  Transmission Date: 20071010
  Serious: Yes (Other)
  Sender: FDA-Public Use
  Company Number: NO-ELI_LILLY_AND_COMPANY-NO200703006213

PATIENT
  Age: 35 Year
  Sex: Male
  Weight: 90 kg

DRUGS (6)
  1. ZYPREXA [Suspect]
     Indication: SCHIZOAFFECTIVE DISORDER
     Dosage: 10 MG, DAILY (1/D)
     Route: 048
     Dates: start: 20070120, end: 20070221
  2. NOZINAN [Concomitant]
     Dosage: 50 MG, DAILY (1/D)
     Route: 048
  3. NITRAZEPAM [Concomitant]
     Dosage: 10 MG, DAILY (1/D)
     Route: 048
  4. ABILIFY [Concomitant]
     Dosage: 15 MG, DAILY (1/D)
     Route: 048
  5. EFFEXOR [Concomitant]
     Dosage: 150 MG, DAILY (1/D)
     Route: 048
  6. LITHIUM CARBONATE [Concomitant]
     Dosage: 42 MG, DAILY (1/D)
     Route: 048

REACTIONS (2)
  - LEUKOPENIA [None]
  - THROMBOCYTOPENIA [None]
